FAERS Safety Report 4686385-X (Version None)
Quarter: 2005Q2

REPORT INFORMATION
  Report Type: 
  Country: None (occurrence: None)
  Receive Date: 20050606
  Receipt Date: 20050524
  Transmission Date: 20051028
  Serious: Yes (Hospitalization, Other)
  Sender: FDA-Public Use
  Company Number: 2005079866

PATIENT
  Age: 75 Year
  Sex: Male
  Weight: 70 kg

DRUGS (9)
  1. NEURONTIN [Suspect]
     Indication: NEUROPATHY PERIPHERAL
     Dosage: ORAL
     Route: 048
     Dates: end: 20050509
  2. HEPARIN CALCIUM [Suspect]
     Indication: ILL-DEFINED DISORDER
     Dosage: SUBCUTANEOUS
     Route: 058
     Dates: start: 20050408
  3. CIPROFLOXACIN HCL [Suspect]
     Indication: ILL-DEFINED DISORDER
     Dosage: 1000 MG (500 MG, 2 IN 1 D) ORAL
     Route: 048
     Dates: start: 20050415, end: 20050429
  4. GENTAMICIN [Suspect]
     Indication: ILL-DEFINED DISORDER
     Dosage: 200 MG (1 IN 1 D) INTRAVENOUS
     Route: 042
     Dates: start: 20050415, end: 20050429
  5. IMOVANE (ZOPICLONE) [Suspect]
     Indication: DEPRESSION
     Dosage: ORAL
     Route: 048
     Dates: end: 20050509
  6. EFFEXOR [Suspect]
     Indication: ILL-DEFINED DISORDER
     Dosage: 150 MG (1 IN 1 D) ORAL
     Route: 048
     Dates: start: 20050425, end: 20050502
  7. XATRAL (ALFUZOSIN) [Concomitant]
  8. STABLON (TIANEPTINE) [Concomitant]
  9. LEVOFLOXACIN [Concomitant]

REACTIONS (7)
  - ANAEMIA [None]
  - BACTERAEMIA [None]
  - NEUTROPENIA [None]
  - RENAL FAILURE [None]
  - SPINAL MYELOGRAM ABNORMAL [None]
  - URINARY TRACT INFECTION [None]
  - WHITE BLOOD CELL COUNT DECREASED [None]
